FAERS Safety Report 7715169-0 (Version None)
Quarter: 2011Q3

REPORT INFORMATION
  Report Type: 
  Country: None (occurrence: None)
  Receive Date: 20110829
  Receipt Date: 20110823
  Transmission Date: 20111222
  Serious: Yes (Other)
  Sender: FDA-Public Use
  Company Number: BR-BRISTOL-MYERS SQUIBB COMPANY-16009912

PATIENT

DRUGS (2)
  1. REYATAZ [Suspect]
  2. RITONAVIR [Suspect]

REACTIONS (1)
  - HEPATITIS [None]
